FAERS Safety Report 23762243 (Version 1)
Quarter: 2024Q2

REPORT INFORMATION
  Report Type: Spontaneous
  Country: FR (occurrence: FR)
  Receive Date: 20240419
  Receipt Date: 20240419
  Transmission Date: 20240716
  Serious: Yes (Other)
  Sender: FDA-Public Use
  Company Number: FR-009507513-2402FRA008992

PATIENT
  Age: 52 Year
  Sex: Female
  Weight: 69 kg

DRUGS (8)
  1. CARBOPLATIN [Suspect]
     Active Substance: CARBOPLATIN
     Indication: Triple negative breast cancer
     Dosage: STRENGTH: 600 MG/60 ML, DOSE:AREA UNDER A CURVE (AUC) 1.1, QW
     Route: 042
     Dates: start: 20230501, end: 20230515
  2. CARBOPLATIN [Suspect]
     Active Substance: CARBOPLATIN
     Dosage: STRENGTH: 600 MG/60 ML, DOSE: AREA UNDER A CURVE (AUC) 1.5, QW
     Route: 042
     Dates: start: 20230227, end: 20230501
  3. CYCLOPHOSPHAMIDE [Suspect]
     Active Substance: CYCLOPHOSPHAMIDE
     Indication: Triple negative breast cancer
     Dosage: 600 MILLIGRAM/SQ. METER, Q3W
     Route: 042
     Dates: start: 20230605, end: 20230807
  4. TAXOL [Suspect]
     Active Substance: PACLITAXEL
     Indication: Triple negative breast cancer
     Dosage: 80 MILLIGRAM/SQ. METER, QW (STRENGTH: 300 MG/50 ML),
     Route: 042
     Dates: start: 20230227, end: 20230515
  5. EPIRUBICIN [Suspect]
     Active Substance: EPIRUBICIN
     Indication: Triple negative breast cancer
     Dosage: 90 MILLIGRAM/SQ. METER, Q3W, ~STRENGTH: 200MG/100ML,
     Route: 042
     Dates: start: 20230605, end: 20230605
  6. EPIRUBICIN [Suspect]
     Active Substance: EPIRUBICIN
     Dosage: 75 MILLIGRAM/SQ. METER, Q3W, STRENGTH: 200MG/100
     Route: 042
     Dates: start: 20230605, end: 20230626
  7. EPIRUBICIN [Suspect]
     Active Substance: EPIRUBICIN
     Dosage: 90 MILLIGRAM/SQ. METER, Q3W, STRENGTH: 200MG/100
     Route: 042
     Dates: start: 20230626, end: 20230807
  8. KEYTRUDA [Suspect]
     Active Substance: PEMBROLIZUMAB
     Indication: Triple negative breast cancer
     Dosage: 200 MILLIGRAM, Q3W, STRENGTH 100MG/4ML
     Route: 042
     Dates: start: 20230227, end: 20231218

REACTIONS (5)
  - Weight decreased [Unknown]
  - Hepatic cytolysis [Recovered/Resolved]
  - Neutropenia [Recovering/Resolving]
  - BRCA1 gene mutation [Unknown]
  - Therapy partial responder [Unknown]

NARRATIVE: CASE EVENT DATE: 20230101
